FAERS Safety Report 5242866-1 (Version None)
Quarter: 2007Q1

REPORT INFORMATION
  Report Type: 
  Country: None (occurrence: None)
  Receive Date: 20070214
  Receipt Date: 20070206
  Transmission Date: 20070707
  Serious: Yes (Life-Threatening, Hospitalization, Other)
  Sender: FDA-Public Use
  Company Number: 163-20785-07010355

PATIENT
  Age: 79 Year
  Sex: Male

DRUGS (17)
  1. THALOMID [Suspect]
     Indication: CYTOGENETIC ANALYSIS ABNORMAL
     Dosage: 200 MG, Q HS, ORAL
     Route: 048
     Dates: start: 20070101, end: 20070104
  2. THALOMID [Suspect]
     Indication: MULTIPLE MYELOMA
     Dosage: 200 MG, Q HS, ORAL
     Route: 048
     Dates: start: 20070101, end: 20070104
  3. PROCRIT [Concomitant]
  4. ASPIRIN [Concomitant]
  5. LASIX [Concomitant]
  6. PLENDIL [Concomitant]
  7. FLOMAX [Concomitant]
  8. LISINORPIL (LISINORPIL) [Concomitant]
  9. SODIUM BICARBONATE IN PLASTIC CONTAINER [Concomitant]
  10. COREG [Concomitant]
  11. NORVASC [Concomitant]
  12. PROSCAR [Concomitant]
  13. GLYBURIDE [Concomitant]
  14. FOLIC ACID [Concomitant]
  15. CALCIUM (CALCIUM) [Concomitant]
  16. VITAMIN D [Concomitant]
  17. ALLOPURINOL [Concomitant]

REACTIONS (5)
  - APNOEA [None]
  - CARDIAC ARREST [None]
  - LOSS OF CONSCIOUSNESS [None]
  - RESPIRATORY ARREST [None]
  - SYNCOPE [None]
